APPROVED DRUG PRODUCT: HALOPERIDOL
Active Ingredient: HALOPERIDOL
Strength: 0.5MG
Dosage Form/Route: TABLET;ORAL
Application: A071209 | Product #002 | TE Code: AB
Applicant: CHARTWELL RX SCIENCES LLC
Approved: Nov 17, 1986 | RLD: No | RS: No | Type: RX